FAERS Safety Report 4905328-4 (Version None)
Quarter: 2006Q1

REPORT INFORMATION
  Report Type: 
  Country: None (occurrence: None)
  Receive Date: 20060207
  Receipt Date: 20060207
  Transmission Date: 20060701
  Serious: No
  Sender: FDA-Public Use
  Company Number: None

PATIENT
  Age: 49 Year
  Sex: Female
  Weight: 64.4108 kg

DRUGS (3)
  1. LEVAQUIN [Suspect]
     Indication: LYMPHADENOPATHY
     Dosage: 500 MG.   1/DAY
     Dates: start: 20050629, end: 20050706
  2. LEVAQUIN [Suspect]
     Indication: PHARYNGOLARYNGEAL PAIN
     Dosage: 500 MG.   1/DAY
     Dates: start: 20050629, end: 20050706
  3. LEVAQUIN [Suspect]
     Indication: SINUSITIS
     Dosage: 500 MG.   1/DAY
     Dates: start: 20050629, end: 20050706

REACTIONS (22)
  - AMNESIA [None]
  - ANAL DISCOMFORT [None]
  - BURNING SENSATION [None]
  - CRYING [None]
  - DEPRESSION [None]
  - DIARRHOEA [None]
  - ERYTHEMA [None]
  - FATIGUE [None]
  - FEELING ABNORMAL [None]
  - GINGIVAL PAIN [None]
  - IMPAIRED WORK ABILITY [None]
  - INSOMNIA [None]
  - LIMB DISCOMFORT [None]
  - MUSCULOSKELETAL STIFFNESS [None]
  - OEDEMA PERIPHERAL [None]
  - ORAL CANDIDIASIS [None]
  - PAIN [None]
  - PAIN IN EXTREMITY [None]
  - PRURITUS [None]
  - SHOULDER PAIN [None]
  - TENDONITIS [None]
  - VISUAL DISTURBANCE [None]
